FAERS Safety Report 8960719 (Version 1)
Quarter: 2012Q4

REPORT INFORMATION
  Report Type: 
  Country: BR (occurrence: BR)
  Receive Date: 20121212
  Receipt Date: 20121212
  Transmission Date: 20130627
  Serious: Yes (Other)
  Sender: FDA-Public Use
  Company Number: CHNY2012BR000681

PATIENT
  Sex: Female
  Weight: 66 kg

DRUGS (2)
  1. CIBALENA [Suspect]
     Indication: MIGRAINE
     Dosage: 1-2 DF, PRN
     Route: 048
  2. ELANI 28 [Concomitant]
     Indication: ORAL CONTRACEPTION
     Dosage: Unk, Unk

REACTIONS (2)
  - Hypertension [Recovered/Resolved]
  - Migraine [Recovered/Resolved]
